FAERS Safety Report 24188444 (Version 1)
Quarter: 2024Q3

REPORT INFORMATION
  Report Type: Report from Study
  Country: US (occurrence: None)
  Receive Date: 20240808
  Receipt Date: 20240808
  Transmission Date: 20241017
  Serious: Yes (Other)
  Sender: ASTRAZENECA
  Company Number: 2024A175992

PATIENT
  Sex: Female

DRUGS (15)
  1. FASENRA [Suspect]
     Active Substance: BENRALIZUMAB
     Indication: Asthma
     Route: 058
  2. BUSPIRONE [Concomitant]
     Active Substance: BUSPIRONE HYDROCHLORIDE
     Dates: end: 2024
  3. PROTONIX [Concomitant]
     Active Substance: PANTOPRAZOLE SODIUM
     Dates: end: 2024
  4. LITHIUM [Concomitant]
     Active Substance: LITHIUM
     Dates: end: 2024
  5. RISPERDAL [Concomitant]
     Active Substance: RISPERIDONE
     Dates: end: 2024
  6. ALBUTEROL [Concomitant]
     Active Substance: ALBUTEROL
  7. MONTELUKAST [Concomitant]
     Active Substance: MONTELUKAST SODIUM
  8. TRELEGY ELLIPTA [Concomitant]
     Active Substance: FLUTICASONE FUROATE\UMECLIDINIUM BROMIDE\VILANTEROL TRIFENATATE
     Dosage: 100-62.5, IN UNKNOWN FREQUENCY
  9. CYCLOBENZAPR POW [Concomitant]
  10. CYMBALTA [Concomitant]
     Active Substance: DULOXETINE HYDROCHLORIDE
  11. GABAPENTIN POW [Concomitant]
  12. HYDROCODONE POW [Concomitant]
  13. LEVOTHYROXIN POW [Concomitant]
  14. STOOL SOFTEN [Concomitant]
  15. TRELEGY ELLI [Concomitant]

REACTIONS (1)
  - Self-injurious ideation [Not Recovered/Not Resolved]
